FAERS Safety Report 5007638-1 (Version None)
Quarter: 2006Q2

REPORT INFORMATION
  Report Type: 
  Country: None (occurrence: None)
  Receive Date: 20060518
  Receipt Date: 20060511
  Transmission Date: 20061013
  Serious: Yes (Other)
  Sender: FDA-Public Use
  Company Number: 6020004F

PATIENT
  Age: 66 Year
  Sex: Male

DRUGS (15)
  1. NIASPAN [Suspect]
     Dosage: 500 MG QD PO
     Route: 048
     Dates: start: 20051123, end: 20051126
  2. INSULIN GLARGINE [Concomitant]
  3. PANTOPRAZOLE SODIUM [Concomitant]
  4. INSULIN HUMAN [Concomitant]
  5. METFORMIN HYDROCHLORIDE [Concomitant]
  6. URAPIDIL [Concomitant]
  7. FENOFIBRATE [Concomitant]
  8. ACETYLSALICYLIC ACID SRT [Concomitant]
  9. MOXONIDINE [Concomitant]
  10. VALSARTAN [Concomitant]
  11. NITRENDIPINE [Concomitant]
  12. CAPTOPRIL [Concomitant]
  13. BISOPROLOL [Concomitant]
  14. HYDROCORTISONE [Concomitant]
  15. FLUVASTATIN SODIUM [Concomitant]

REACTIONS (3)
  - PULMONARY EMBOLISM [None]
  - THROMBOPHLEBITIS [None]
  - THROMBOSIS [None]
